FAERS Safety Report 10683794 (Version 1)
Quarter: 2014Q4

REPORT INFORMATION
  Report Type: Spontaneous
  Country: US (occurrence: US)
  Receive Date: 20141230
  Receipt Date: 20141230
  Transmission Date: 20150529
  Serious: Yes (Death, Other)
  Sender: FDA-Public Use
  Company Number: US-PFIZER INC-2014360237

PATIENT
  Age: 22 Month
  Sex: Male

DRUGS (1)
  1. MORPHINE SULFATE. [Suspect]
     Active Substance: MORPHINE SULFATE
     Dosage: UNK
     Route: 048

REACTIONS (2)
  - Intentional overdose [Fatal]
  - Victim of child abuse [Unknown]

NARRATIVE: CASE EVENT DATE: 2013
